FAERS Safety Report 4486859-0 (Version None)
Quarter: 2004Q4

REPORT INFORMATION
  Report Type: 
  Country: None (occurrence: None)
  Receive Date: 20041022
  Receipt Date: 20041019
  Transmission Date: 20050328
  Serious: Yes (Hospitalization)
  Sender: FDA-Public Use
  Company Number: 200412762GDS

PATIENT
  Age: 73 Year
  Sex: Female

DRUGS (1)
  1. ASPIRIN [Suspect]
     Indication: MONARTHRITIS
     Dosage: QD, ORAL
     Route: 048

REACTIONS (7)
  - ABDOMINAL PAIN UPPER [None]
  - EXCESSIVE GRANULATION TISSUE [None]
  - HAEMATEMESIS [None]
  - HAEMATOMA [None]
  - HAEMORRHAGE [None]
  - PANCREATIC CYST [None]
  - TENDERNESS [None]
